FAERS Safety Report 7898341-9 (Version None)
Quarter: 2011Q4

REPORT INFORMATION
  Report Type: 
  Country: None (occurrence: None)
  Receive Date: 20111103
  Receipt Date: 20111021
  Transmission Date: 20120403
  Serious: Yes (Death, Hospitalization)
  Sender: FDA-Public Use
  Company Number: LEO-2011-00883

PATIENT
  Age: 30 Year
  Sex: Female
  Weight: 100 kg

DRUGS (1)
  1. INNOHEP [Suspect]
     Indication: FIBULA FRACTURE
     Dosage: SUBCUTANEOUS
     Route: 058

REACTIONS (5)
  - CARDIAC ARREST [None]
  - PHLEBITIS [None]
  - DYSPNOEA [None]
  - OEDEMA PERIPHERAL [None]
  - OFF LABEL USE [None]
